FAERS Safety Report 13187933 (Version 9)
Quarter: 2018Q1

REPORT INFORMATION
  Report Type: Spontaneous
  Country: US (occurrence: US)
  Receive Date: 20170206
  Receipt Date: 20180105
  Transmission Date: 20180508
  Serious: Yes (Death, Hospitalization, Congenital Anomaly, Other)
  Sender: FDA-Public Use
  Company Number: PHEH2017US003581

PATIENT
  Sex: Female

DRUGS (1)
  1. ZOFRAN ODT [Suspect]
     Active Substance: ONDANSETRON HYDROCHLORIDE
     Indication: FOETAL EXPOSURE DURING PREGNANCY
     Dosage: MOTHER^S DOSE: 08 MG, AS NEEDED (PRN)
     Route: 064

REACTIONS (28)
  - DiGeorge^s syndrome [Unknown]
  - Patent ductus arteriosus [Unknown]
  - Discordant twin [Unknown]
  - Neonatal respiratory distress [Recovered/Resolved]
  - Small for dates baby [Unknown]
  - Foetal exposure during pregnancy [Unknown]
  - Truncus arteriosus persistent [Unknown]
  - Premature baby [Unknown]
  - Pulmonary oedema neonatal [Unknown]
  - Thrombocytopenia neonatal [Unknown]
  - Heart disease congenital [Fatal]
  - Congenital anaemia [Unknown]
  - Cardiac arrest neonatal [Unknown]
  - Pneumothorax [Unknown]
  - Right ventricular dilatation [Unknown]
  - Kidney malformation [Unknown]
  - Placental transfusion syndrome [Unknown]
  - Atrial septal defect [Unknown]
  - Left-to-right cardiac shunt [Unknown]
  - Pulmonary interstitial emphysema syndrome [Unknown]
  - Cardiac murmur [Unknown]
  - Interruption of aortic arch [Unknown]
  - Single functional kidney [Unknown]
  - Sepsis [Unknown]
  - Cardiomegaly [Unknown]
  - Ventricular septal defect [Unknown]
  - Tricuspid valve incompetence [Unknown]
  - Dyspnoea [Unknown]
